FAERS Safety Report 6943398-2 (Version None)
Quarter: 2010Q3

REPORT INFORMATION
  Report Type: 
  Country: None (occurrence: None)
  Receive Date: 20100826
  Receipt Date: 20100818
  Transmission Date: 20110219
  Serious: No
  Sender: FDA-Public Use
  Company Number: US-ASTRAZENECA-2010SE10152

PATIENT
  Age: 52 Year
  Sex: Female
  Weight: 97.1 kg

DRUGS (10)
  1. SEROQUEL [Suspect]
     Indication: BIPOLAR DISORDER
     Route: 048
     Dates: start: 20070101
  2. SEROQUEL [Suspect]
     Route: 048
     Dates: start: 20071001
  3. SEROQUEL [Suspect]
     Route: 048
     Dates: start: 20090609, end: 20100101
  4. SEROQUEL [Suspect]
     Route: 048
     Dates: start: 20100308, end: 20100601
  5. LEVASTATIN [Concomitant]
  6. ATIVAN [Concomitant]
     Indication: ANXIETY
     Route: 048
     Dates: start: 20090804
  7. MEDICATION FOR SHINGLES [Concomitant]
     Indication: HERPES ZOSTER
  8. AMBIEN [Concomitant]
     Indication: INSOMNIA
     Route: 048
     Dates: start: 20090502
  9. METFORMIN HCL [Concomitant]
  10. LEXAPRO [Concomitant]
     Route: 048

REACTIONS (8)
  - ANAEMIA [None]
  - BLOOD GLUCOSE INCREASED [None]
  - DIABETES MELLITUS [None]
  - HYPERCHOLESTEROLAEMIA [None]
  - HYPERPROLACTINAEMIA [None]
  - HYPERTRIGLYCERIDAEMIA [None]
  - LEUKOPENIA [None]
  - WEIGHT INCREASED [None]
